FAERS Safety Report 11550037 (Version 2)
Quarter: 2015Q4

REPORT INFORMATION
  Report Type: Report from Study
  Country: US (occurrence: US)
  Receive Date: 20150924
  Receipt Date: 20151006
  Transmission Date: 20160304
  Serious: No
  Sender: FDA-Public Use
  Company Number: PHEH2015US018814

PATIENT
  Age: 47 Year
  Sex: Female

DRUGS (1)
  1. GILENYA [Suspect]
     Active Substance: FINGOLIMOD HYDROCHLORIDE
     Indication: PRODUCT USED FOR UNKNOWN INDICATION
     Dosage: 0.5 MG, QD
     Route: 048
     Dates: start: 20150921

REACTIONS (6)
  - Decreased appetite [Unknown]
  - Headache [Recovered/Resolved]
  - Palpitations [Unknown]
  - Blood pressure systolic decreased [Unknown]
  - Nausea [Unknown]
  - Extrasystoles [Unknown]

NARRATIVE: CASE EVENT DATE: 20150921
